FAERS Safety Report 5245342-5 (Version None)
Quarter: 2007Q1

REPORT INFORMATION
  Report Type: 
  Country: None (occurrence: None)
  Receive Date: 20070223
  Receipt Date: 20070216
  Transmission Date: 20070707
  Serious: Yes (Other)
  Sender: FDA-Public Use
  Company Number: 2007UW03116

PATIENT
  Sex: Female

DRUGS (2)
  1. NEXIUM [Suspect]
     Route: 048
     Dates: start: 20060201, end: 20070214
  2. NEXIUM [Suspect]
     Route: 048
     Dates: start: 20070216

REACTIONS (2)
  - DYSPEPSIA [None]
  - FALL [None]
